FAERS Safety Report 11466815 (Version 1)
Quarter: 2015Q3

REPORT INFORMATION
  Report Type: Spontaneous
  Country: US (occurrence: US)
  Receive Date: 20150908
  Receipt Date: 20150908
  Transmission Date: 20151125
  Serious: No
  Sender: FDA-Public Use
  Company Number: US-009507513-1509USA002917

PATIENT
  Age: 30 Year
  Sex: Female
  Weight: 94.33 kg

DRUGS (4)
  1. NEXPLANON [Suspect]
     Active Substance: ETONOGESTREL
     Indication: CONTRACEPTION
     Dosage: 1 ROD PER 3 YEARS
     Route: 059
     Dates: start: 20121004
  2. TROKENDI XR [Concomitant]
     Active Substance: TOPIRAMATE
  3. VIIBRYD [Concomitant]
     Active Substance: VILAZODONE HYDROCHLORIDE
  4. ELAVIL (ALLOPURINOL) [Concomitant]

REACTIONS (3)
  - Pregnancy with implant contraceptive [Unknown]
  - Headache [Not Recovered/Not Resolved]
  - Unintended pregnancy [Unknown]

NARRATIVE: CASE EVENT DATE: 20150717
